FAERS Safety Report 15369471 (Version 2)
Quarter: 2019Q2

REPORT INFORMATION
  Report Type: Spontaneous
  Country: US (occurrence: US)
  Receive Date: 20180911
  Receipt Date: 20190412
  Transmission Date: 20190711
  Serious: No
  Sender: FDA-Public Use
  Company Number: US-PFIZER INC-2018365966

PATIENT
  Age: 59 Year
  Sex: Male
  Weight: 87.53 kg

DRUGS (2)
  1. CLEOCIN [Suspect]
     Active Substance: CLINDAMYCIN PHOSPHATE
     Indication: STAPHYLOCOCCAL INFECTION
     Dosage: UNK
  2. XANAX [Concomitant]
     Active Substance: ALPRAZOLAM
     Indication: ANXIETY
     Dosage: UNK, 2X/DAY (A HALF 0.5)
     Route: 048

REACTIONS (4)
  - Malaise [Unknown]
  - Back disorder [Unknown]
  - Vitamin D abnormal [Unknown]
  - Drug effective for unapproved indication [Unknown]
